FAERS Safety Report 15287237 (Version 3)
Quarter: 2018Q4

REPORT INFORMATION
  Report Type: Report from Study
  Country: RU (occurrence: RU)
  Receive Date: 20180817
  Receipt Date: 20181029
  Transmission Date: 20190204
  Serious: Yes (Death, Hospitalization)
  Sender: FDA-Public Use
  Company Number: RU-ROCHE-2147860

PATIENT
  Age: 54 Year
  Sex: Female
  Weight: 89 kg

DRUGS (17)
  1. SOLU-MEDROL [Concomitant]
     Active Substance: METHYLPREDNISOLONE SODIUM SUCCINATE
     Route: 065
     Dates: start: 20180706
  2. OMEZ [Concomitant]
     Active Substance: OMEPRAZOLE
     Indication: PROPHYLAXIS
     Route: 065
     Dates: start: 20180220, end: 20180804
  3. CYMBALTA [Concomitant]
     Active Substance: DULOXETINE HYDROCHLORIDE
     Route: 065
     Dates: start: 20180627
  4. PENTOXIFYLLINE. [Concomitant]
     Active Substance: PENTOXIFYLLINE
     Route: 065
     Dates: start: 20180624
  5. ADEMETIONINE [Concomitant]
     Active Substance: ADEMETIONINE
     Indication: PROPHYLAXIS
     Route: 065
     Dates: start: 20180220, end: 20180804
  6. LOSARTAN. [Concomitant]
     Active Substance: LOSARTAN
     Route: 065
     Dates: start: 20180723
  7. PACLITAXEL. [Suspect]
     Active Substance: PACLITAXEL
     Indication: TRIPLE NEGATIVE BREAST CANCER
     Dosage: MOST RECENT DOSE OF PACLITAXEL PRIOR TO THE ONSET OF MYASTHENIA GRAVIS: 31/MAY/2018 (90 MG/M2)
     Route: 042
     Dates: start: 20180222, end: 20180614
  8. ACECARDOL [Concomitant]
     Active Substance: ASPIRIN
     Route: 065
     Dates: start: 20180624
  9. DICLOFENAC [Concomitant]
     Active Substance: DICLOFENAC
     Route: 065
     Dates: start: 20180624, end: 20180628
  10. IMIDAPRIL [Concomitant]
     Active Substance: IMIDAPRIL
     Route: 065
     Dates: start: 20180625
  11. GLUCOPHAGE [Concomitant]
     Active Substance: METFORMIN HYDROCHLORIDE
     Route: 065
     Dates: start: 20170905, end: 20180804
  12. PHYSIOTENS [Concomitant]
     Active Substance: MOXONIDINE
     Route: 065
     Dates: start: 201709, end: 20180804
  13. TAVEGYL [Concomitant]
     Active Substance: CLEMASTINE FUMARATE
     Indication: PREMEDICATION
     Route: 065
     Dates: start: 20180222
  14. ATEZOLIZUMAB. [Suspect]
     Active Substance: ATEZOLIZUMAB
     Indication: TRIPLE NEGATIVE BREAST CANCER
     Dosage: MOST RECENT DOSE OF ATEZOLIZUMAB PRIOR TO THE ONSET OF MYASTHENIA GRAVIS: 14/JUN/2018
     Route: 042
     Dates: start: 20180222
  15. CONCOR [Concomitant]
     Active Substance: BISOPROLOL FUMARATE
     Route: 065
     Dates: start: 20170910, end: 20180804
  16. PHOSPHOGLIV [Concomitant]
     Route: 065
     Dates: start: 20180220, end: 20180804
  17. OCTOLIPEN [Concomitant]
     Route: 065
     Dates: start: 20180624, end: 20180706

REACTIONS (1)
  - Myasthenia gravis [Fatal]

NARRATIVE: CASE EVENT DATE: 20180612
